FAERS Safety Report 7583576-5 (Version None)
Quarter: 2011Q2

REPORT INFORMATION
  Report Type: 
  Country: None (occurrence: None)
  Receive Date: 20110630
  Receipt Date: 20110610
  Transmission Date: 20111010
  Serious: Yes (Hospitalization)
  Sender: FDA-Public Use
  Company Number: A0806074A

PATIENT
  Age: 73 Year
  Sex: Female
  Weight: 72.7 kg

DRUGS (7)
  1. GLYBURIDE [Concomitant]
  2. NEXIUM [Concomitant]
  3. ZOCOR [Concomitant]
  4. AVANDIA [Suspect]
     Indication: DIABETES MELLITUS
     Dosage: 8MG PER DAY
     Route: 048
     Dates: start: 20050131, end: 20070101
  5. SYNTHROID [Concomitant]
  6. METFORMIN HCL [Concomitant]
  7. LIPITOR [Concomitant]

REACTIONS (4)
  - FLUID RETENTION [None]
  - MYOCARDIAL INFARCTION [None]
  - CORONARY ARTERY DISEASE [None]
  - CARDIAC FAILURE CONGESTIVE [None]
